FAERS Safety Report 8757853 (Version 1)
Quarter: 2012Q4

REPORT INFORMATION
  Report Type: 
  Country: ES (occurrence: ES)
  Receive Date: 20120828
  Receipt Date: 20120828
  Transmission Date: 20130627
  Serious: Yes (Other)
  Sender: FDA-Public Use
  Company Number: ES-ARROW-2012-14915

PATIENT
  Age: 65 Year
  Sex: Female

DRUGS (1)
  1. ROPINIROLE HYDROCHLORIDE (UNKNOWN) [Suspect]
     Indication: PARKINSONISM
     Dosage: 15 mg, daily
     Route: 065

REACTIONS (1)
  - Pleurothotonus [Recovered/Resolved]
